FAERS Safety Report 7397956-4 (Version None)
Quarter: 2011Q2

REPORT INFORMATION
  Report Type: 
  Country: None (occurrence: None)
  Receive Date: 20110406
  Receipt Date: 20110328
  Transmission Date: 20111010
  Serious: Yes (Death)
  Sender: FDA-Public Use
  Company Number: US-CEPHALON-2011001452

PATIENT
  Sex: Female
  Weight: 62 kg

DRUGS (3)
  1. CYCLOBENZAPRINE HCL [Suspect]
     Route: 048
     Dates: end: 20100101
  2. METHADONE [Suspect]
     Indication: PAIN
     Dates: end: 20100101
  3. REBIF [Suspect]
     Indication: MULTIPLE SCLEROSIS
     Dates: start: 20090423, end: 20100101

REACTIONS (2)
  - TOXICITY TO VARIOUS AGENTS [None]
  - CHRONIC OBSTRUCTIVE PULMONARY DISEASE [None]
